FAERS Safety Report 18480366 (Version 1)
Quarter: 2020Q4

REPORT INFORMATION
  Report Type: Spontaneous
  Country: US (occurrence: US)
  Receive Date: 20201109
  Receipt Date: 20201109
  Transmission Date: 20210114
  Serious: Yes (Hospitalization)
  Sender: FDA-Public Use
  Company Number: None

PATIENT
  Age: 50 Year
  Sex: Male
  Weight: 144.6 kg

DRUGS (4)
  1. FUROSEMIDE. [Concomitant]
     Active Substance: FUROSEMIDE
     Dates: start: 20201103, end: 20201104
  2. LOSARTAN. [Concomitant]
     Active Substance: LOSARTAN
     Dates: start: 20201103, end: 20201104
  3. REMDESIVIR. [Suspect]
     Active Substance: REMDESIVIR
     Indication: COVID-19
     Route: 041
     Dates: start: 20201103, end: 20201105
  4. CONTRAST [Concomitant]
     Active Substance: UNSPECIFIED INGREDIENT
     Dates: start: 20201103, end: 20201103

REACTIONS (1)
  - Blood creatine increased [None]

NARRATIVE: CASE EVENT DATE: 20201105
